FAERS Safety Report 4539895-X (Version None)
Quarter: 2004Q4

REPORT INFORMATION
  Report Type: 
  Country: None (occurrence: None)
  Receive Date: 20041223
  Receipt Date: 20041213
  Transmission Date: 20050328
  Serious: Yes (Disabling, Other)
  Sender: FDA-Public Use
  Company Number: 2004112693

PATIENT
  Age: 85 Year
  Sex: Female

DRUGS (2)
  1. XALATAN [Suspect]
     Indication: GLAUCOMA
     Dosage: ONCE AT NIGHT
  2. APRACLONIDINE (APRACLONIDINE) [Suspect]
     Indication: GLAUCOMA
     Dosage: TWICE A DAY

REACTIONS (9)
  - CONJUNCTIVAL SCAR [None]
  - CORNEAL OPACITY [None]
  - CORNEAL SCAR [None]
  - EYE DISORDER [None]
  - KERATOCONJUNCTIVITIS SICCA [None]
  - LENTICULAR OPACITIES [None]
  - PEMPHIGOID [None]
  - REACTION TO DRUG PRESERVATIVES [None]
  - VISUAL ACUITY REDUCED [None]
